FAERS Safety Report 13066369 (Version 4)
Quarter: 2017Q3

REPORT INFORMATION
  Report Type: Spontaneous
  Country: US (occurrence: US)
  Receive Date: 20161227
  Receipt Date: 20170925
  Transmission Date: 20171127
  Serious: Yes (Hospitalization, Other)
  Sender: FDA-Public Use
  Company Number: US-BAYER-2016-242387

PATIENT
  Age: 31 Year
  Sex: Female

DRUGS (3)
  1. MIRENA [Suspect]
     Active Substance: LEVONORGESTREL
     Indication: CONTRACEPTION
     Dosage: 20 MCG/24HR, CONT
     Route: 015
     Dates: start: 20131219, end: 20150727
  2. BYSTOLIC [Concomitant]
     Active Substance: NEBIVOLOL HYDROCHLORIDE
     Indication: HYPERTENSION
  3. DEPO-PROVERA [Concomitant]
     Active Substance: MEDROXYPROGESTERONE ACETATE

REACTIONS (12)
  - Deafness unilateral [None]
  - Depression [None]
  - Injury [None]
  - Anxiety [None]
  - Anxiety [None]
  - Device issue [None]
  - Vertigo [None]
  - Genital haemorrhage [None]
  - Device dislocation [None]
  - Device expulsion [None]
  - Device issue [None]
  - Abdominal pain upper [None]

NARRATIVE: CASE EVENT DATE: 201312
